FAERS Safety Report 5065305-2 (Version None)
Quarter: 2006Q3

REPORT INFORMATION
  Report Type: 
  Country: None (occurrence: None)
  Receive Date: 20060707
  Receipt Date: 20050826
  Transmission Date: 20061208
  Serious: Yes (Hospitalization)
  Sender: FDA-Public Use
  Company Number: SUS1-2005-00659

PATIENT
  Age: 23 Year
  Sex: Female

DRUGS (2)
  1. MESALAMINE [Suspect]
     Indication: PROCTOCOLITIS
     Dosage: ORAL
     Route: 048
  2. CORTICOSTERIOD NOS (CORTICOSTEROID NOS) [Concomitant]

REACTIONS (1)
  - PANCREATITIS ACUTE [None]
